FAERS Safety Report 21885070 (Version 1)
Quarter: 2023Q1

REPORT INFORMATION
  Report Type: Spontaneous
  Country: US (occurrence: US)
  Receive Date: 20230119
  Receipt Date: 20230119
  Transmission Date: 20230417
  Serious: No
  Sender: FDA-Public Use
  Company Number: US-LANNETT COMPANY, INC.-US-2022LAN000086

PATIENT
  Sex: Female

DRUGS (1)
  1. BACLOFEN [Suspect]
     Active Substance: BACLOFEN
     Indication: Spinal cord oedema
     Dosage: UNK
     Route: 065

REACTIONS (4)
  - Pharyngeal swelling [Unknown]
  - Pain [Unknown]
  - Counterfeit product administered [Unknown]
  - Product tampering [Unknown]
